FAERS Safety Report 7372284-1 (Version None)
Quarter: 2011Q1

REPORT INFORMATION
  Report Type: 
  Country: None (occurrence: None)
  Receive Date: 20110324
  Receipt Date: 20110316
  Transmission Date: 20110831
  Serious: Yes (Congenital Anomaly)
  Sender: FDA-Public Use
  Company Number: A0919484A

PATIENT
  Sex: Male
  Weight: 2.9 kg

DRUGS (2)
  1. IRON [Concomitant]
  2. PAXIL [Suspect]
     Dosage: 30MG PER DAY
     Route: 064

REACTIONS (3)
  - WILLIAMS SYNDROME [None]
  - PULMONARY ARTERY STENOSIS CONGENITAL [None]
  - DRUG EXPOSURE DURING PREGNANCY [None]
